FAERS Safety Report 18727340 (Version 2)
Quarter: 2022Q1

REPORT INFORMATION
  Report Type: Spontaneous
  Country: US (occurrence: None)
  Receive Date: 20210111
  Receipt Date: 20220105
  Transmission Date: 20220424
  Serious: No
  Sender: FDA-Public Use
  Company Number: US-ROCHE-2716141

PATIENT
  Sex: Male

DRUGS (2)
  1. HEMLIBRA [Suspect]
     Active Substance: EMICIZUMAB-KXWH
     Indication: Factor VIII deficiency
     Dosage: STRENGHT: 60 MG/0.4 ML
     Route: 058
     Dates: start: 20200727
  2. HEMLIBRA [Suspect]
     Active Substance: EMICIZUMAB-KXWH
     Indication: Factor VIII deficiency
     Dosage: DOSAGE STRENGTH: 60MG/0.4 ML
     Route: 058
     Dates: start: 20191118

REACTIONS (3)
  - Eye haemorrhage [Unknown]
  - Haemorrhage [Recovered/Resolved]
  - Eye injury [Unknown]
